FAERS Safety Report 6640691-8 (Version None)
Quarter: 2010Q1

REPORT INFORMATION
  Report Type: 
  Country: None (occurrence: None)
  Receive Date: 20100318
  Receipt Date: 20100303
  Transmission Date: 20100710
  Serious: Yes (Death, Hospitalization)
  Sender: FDA-Public Use
  Company Number: NL-MEDIMMUNE-MEDI-0010476

PATIENT
  Sex: Female
  Weight: 5.17 kg

DRUGS (1)
  1. SYNAGIS [Suspect]
     Route: 030
     Dates: start: 20091105, end: 20091203

REACTIONS (5)
  - BACTERIAL INFECTION [None]
  - METAPNEUMOVIRUS INFECTION [None]
  - PNEUMONITIS [None]
  - VIRAL INFECTION [None]
  - WHEEZING [None]
